FAERS Safety Report 9786947 (Version 1)
Quarter: 2013Q4

REPORT INFORMATION
  Report Type: Report from Study
  Country: US (occurrence: US)
  Receive Date: 20131227
  Receipt Date: 20131227
  Transmission Date: 20140711
  Serious: Yes (Hospitalization)
  Sender: FDA-Public Use
  Company Number: US-ABBVIE-13P-163-1182178-00

PATIENT
  Age: 74 Year
  Sex: Female
  Weight: 59.02 kg

DRUGS (10)
  1. HUMIRA [Suspect]
     Indication: CROHN^S DISEASE
     Dates: start: 201111, end: 201310
  2. HUMIRA [Suspect]
     Dates: start: 20131211
  3. CHLORDIAZEPOX-CLIDINIUM [Concomitant]
     Indication: GASTRIC DISORDER
  4. BUDESONIDE [Concomitant]
     Indication: GASTRIC DISORDER
  5. PRAMIPEXOLE [Concomitant]
     Indication: RESTLESS LEGS SYNDROME
  6. LISINOPRIL [Concomitant]
     Indication: HYPERTENSION
  7. DONEPEZIL [Concomitant]
     Indication: GASTRIC DISORDER
  8. COLESTIPOL [Concomitant]
     Indication: DIARRHOEA
  9. NEXIUM [Concomitant]
     Indication: DYSPEPSIA
  10. METOPROLOL [Concomitant]
     Indication: HYPERTENSION

REACTIONS (4)
  - Ileal stenosis [Recovered/Resolved]
  - Abdominal pain [Recovering/Resolving]
  - Diarrhoea [Recovering/Resolving]
  - Headache [Unknown]
